FAERS Safety Report 17709495 (Version 1)
Quarter: 2020Q2

REPORT INFORMATION
  Report Type: Spontaneous
  Country: JP (occurrence: JP)
  Receive Date: 20200427
  Receipt Date: 20200427
  Transmission Date: 20200714
  Serious: Yes (Death, Hospitalization)
  Sender: FDA-Public Use
  Company Number: JP-TEVA-2020-JP-1227916

PATIENT
  Age: 71 Year
  Sex: Female

DRUGS (17)
  1. HYDROCORTISONE. [Suspect]
     Active Substance: HYDROCORTISONE
     Indication: SEPTIC SHOCK
     Dosage: 200 MILLIGRAM DAILY;
     Route: 065
  2. VASOPRESSIN. [Suspect]
     Active Substance: VASOPRESSIN
     Indication: SEPTIC SHOCK
     Dosage: 0.03 U/MIN
     Route: 065
  3. REBAMIPIDE [Concomitant]
     Active Substance: REBAMIPIDE
     Route: 065
  4. DOMPERIDONE [Concomitant]
     Active Substance: DOMPERIDONE
     Route: 065
  5. NORADRENALIN [Suspect]
     Active Substance: NOREPINEPHRINE\NOREPINEPHRINE BITARTRATE
     Indication: HYPOTENSION
     Route: 065
  6. METOCLOPRAMIDE. [Suspect]
     Active Substance: METOCLOPRAMIDE
     Route: 041
  7. LEVOFLOXACIN. [Suspect]
     Active Substance: LEVOFLOXACIN
     Indication: JAPANESE SPOTTED FEVER
     Route: 065
  8. LACTATED RINGERS SOLUTION [Suspect]
     Active Substance: CALCIUM CHLORIDE\POTASSIUM CHLORIDE\SODIUM CHLORIDE\SODIUM LACTATE
     Route: 041
  9. ACETATED RINGER^S SOLUTION [CALCIUM CHLORIDE ANHYDROUS\MAGNESIUM CHLORIDE ANHYDROUS\POTASSIUM CHLORIDE\SODIUM ACETATE\SODIUM CHLORIDE] [Suspect]
     Active Substance: CALCIUM CHLORIDE ANHYDROUS\MAGNESIUM CHLORIDE ANHYDROUS\POTASSIUM CHLORIDE\SODIUM ACETATE\SODIUM CHLORIDE
     Indication: SEPSIS
     Route: 050
  10. ANTITHROMBIN III (HUMAN) [Suspect]
     Active Substance: ANTITHROMBIN III HUMAN
     Indication: DISSEMINATED INTRAVASCULAR COAGULATION
     Route: 065
  11. ESOMEPRAZOLE. [Concomitant]
     Active Substance: ESOMEPRAZOLE MAGNESIUM
     Route: 065
  12. CEFCAPENE PIVOXIL [Concomitant]
     Active Substance: CEFCAPENE PIVOXIL
     Route: 065
  13. BIFIDOBACTERIUM [Concomitant]
     Active Substance: BIFIDOBACTERIUM LONGUM
     Route: 065
  14. MINOCYCLINE [Suspect]
     Active Substance: MINOCYCLINE HYDROCHLORIDE
     Indication: JAPANESE SPOTTED FEVER
     Route: 065
  15. RECOMBINANT HUMANSOLUBLE THROMBOMODULIN-ALFA [Suspect]
     Active Substance: THROMBOMODULIN ALFA
     Indication: DISSEMINATED INTRAVASCULAR COAGULATION
     Route: 065
  16. LOXOPROFEN [Concomitant]
     Active Substance: LOXOPROFEN
     Route: 065
  17. ACETAMINOPHEN. [Concomitant]
     Active Substance: ACETAMINOPHEN
     Route: 065

REACTIONS (2)
  - Drug ineffective [Fatal]
  - Rash maculo-papular [Recovering/Resolving]
